FAERS Safety Report 25312504 (Version 1)
Quarter: 2025Q2

REPORT INFORMATION
  Report Type: Spontaneous
  Country: FR (occurrence: FR)
  Receive Date: 20250514
  Receipt Date: 20250514
  Transmission Date: 20250717
  Serious: Yes (Hospitalization, Other)
  Sender: CHEPLAPHARM
  Company Number: None

PATIENT
  Age: 69 Year
  Sex: Female

DRUGS (12)
  1. CAPECITABINE [Suspect]
     Active Substance: CAPECITABINE
     Indication: Adenocarcinoma of colon
     Dosage: FIRST CYCLE/D1
     Route: 048
     Dates: start: 20250224, end: 20250309
  2. CAPECITABINE [Suspect]
     Active Substance: CAPECITABINE
     Indication: Adenocarcinoma of colon
     Dosage: 2ND CYCLE D1
     Route: 048
     Dates: start: 20250317, end: 20250330
  3. CAPECITABINE [Suspect]
     Active Substance: CAPECITABINE
     Indication: Adenocarcinoma of colon
     Dosage: 3RD CYCLE D1
     Route: 048
     Dates: start: 20250407
  4. AMPHOTERICIN B [Suspect]
     Active Substance: AMPHOTERICIN B
     Indication: Mucosal inflammation
     Dates: start: 202504
  5. OXALIPLATIN [Suspect]
     Active Substance: OXALIPLATIN
     Indication: Adenocarcinoma of colon
     Dosage: 1ST CYCLE D1
     Route: 042
     Dates: start: 20250224
  6. OXALIPLATIN [Suspect]
     Active Substance: OXALIPLATIN
     Indication: Adenocarcinoma of colon
     Dosage: 2ND CYCLE D1
     Route: 042
     Dates: start: 20250317
  7. OXALIPLATIN [Suspect]
     Active Substance: OXALIPLATIN
     Indication: Adenocarcinoma of colon
     Dosage: 3RD CYCLE D1
     Route: 042
     Dates: start: 20250407
  8. AMLODIPINE BESYLATE [Concomitant]
     Active Substance: AMLODIPINE BESYLATE
  9. METFORMIN [Concomitant]
     Active Substance: METFORMIN HYDROCHLORIDE
     Dates: end: 202504
  10. INSULIN NOS [Concomitant]
     Active Substance: INSULIN NOS
     Dates: start: 202504
  11. INNOHEP [Concomitant]
     Active Substance: TINZAPARIN SODIUM
     Dates: start: 202504
  12. MYCOSTATIN [Concomitant]
     Active Substance: NYSTATIN
     Indication: Mucosal inflammation
     Dates: start: 202504

REACTIONS (6)
  - Diarrhoea [Recovering/Resolving]
  - Hypovolaemic shock [Recovered/Resolved]
  - Mucosal inflammation [Not Recovered/Not Resolved]
  - Pancytopenia [Not Recovered/Not Resolved]
  - Urinary tract infection [Unknown]
  - Off label use [Unknown]

NARRATIVE: CASE EVENT DATE: 20250401
